FAERS Safety Report 20391310 (Version 3)
Quarter: 2022Q2

REPORT INFORMATION
  Report Type: Spontaneous
  Country: ES (occurrence: ES)
  Receive Date: 20220128
  Receipt Date: 20220524
  Transmission Date: 20220721
  Serious: Yes (Other)
  Sender: FDA-Public Use
  Company Number: ES-AUROBINDO-AUR-APL-2022-000596

PATIENT
  Age: 75 Year
  Sex: Male

DRUGS (1)
  1. LINEZOLID [Suspect]
     Active Substance: LINEZOLID
     Indication: Device related infection
     Dosage: 600 MG, 2X/DAY (EVERY 12 HOURS)
     Route: 048

REACTIONS (2)
  - Haematotoxicity [Unknown]
  - Off label use [Unknown]
